FAERS Safety Report 4887996-9 (Version None)
Quarter: 2006Q1

REPORT INFORMATION
  Report Type: 
  Country: None (occurrence: None)
  Receive Date: 20060123
  Receipt Date: 20051013
  Transmission Date: 20060701
  Serious: Yes (Hospitalization, Other)
  Sender: FDA-Public Use
  Company Number: 200517500US

PATIENT
  Sex: Male

DRUGS (5)
  1. LANTUS [Suspect]
     Indication: DIABETES MELLITUS NON-INSULIN-DEPENDENT
     Dosage: DOSE UNIT: UNITS
     Route: 058
     Dates: start: 20050101
  2. LANTUS [Suspect]
     Route: 058
     Dates: start: 20010101
  3. LANTUS [Suspect]
     Route: 058
     Dates: start: 20010101
  4. GLUCOPHAGE [Concomitant]
     Dosage: DOSE: 2 IN AM, 2 AT 4PM
  5. GLYBURIDE [Concomitant]
     Indication: DIABETES MELLITUS NON-INSULIN-DEPENDENT

REACTIONS (6)
  - BLOOD GLUCOSE FLUCTUATION [None]
  - BLOOD GLUCOSE INCREASED [None]
  - CHOLECYSTECTOMY [None]
  - DRUG INEFFECTIVE [None]
  - MALAISE [None]
  - TREATMENT NONCOMPLIANCE [None]
